FAERS Safety Report 4701480-4 (Version None)
Quarter: 2005Q2

REPORT INFORMATION
  Report Type: 
  Country: None (occurrence: None)
  Receive Date: 20050628
  Receipt Date: 20050615
  Transmission Date: 20051028
  Serious: Yes (Other)
  Sender: FDA-Public Use
  Company Number: PHEH2005US06803

PATIENT
  Age: 65 Year
  Sex: Female

DRUGS (13)
  1. ZOMETA [Suspect]
     Indication: OSTEOPOROSIS
     Dosage: 4MG UNK
     Route: 042
     Dates: start: 20050614
  2. NASACORT [Concomitant]
  3. ASPIRIN [Concomitant]
  4. VITAMIN D [Concomitant]
  5. BION TEARS [Concomitant]
  6. VAGIFEM [Concomitant]
  7. ESTRADIOL [Concomitant]
  8. ADVIL [Concomitant]
  9. LANSOPRAZOLE [Concomitant]
  10. COZAAR [Concomitant]
  11. TOPROL-XL [Concomitant]
  12. PROTOPIC [Concomitant]
  13. NEURONTIN [Concomitant]

REACTIONS (2)
  - EYE INFECTION [None]
  - IRITIS [None]
